FAERS Safety Report 8969072 (Version 1)
Quarter: 2012Q4

REPORT INFORMATION
  Report Type: 
  Country: ZA (occurrence: ZA)
  Receive Date: 20121217
  Receipt Date: 20121217
  Transmission Date: 20130627
  Serious: Yes (Other)
  Sender: FDA-Public Use
  Company Number: ZA-ALLERGAN-1217199US

PATIENT
  Age: 46 Year
  Sex: Female
  Weight: 80 kg

DRUGS (2)
  1. BOTOX� [Suspect]
     Indication: GLABELLAR FROWN LINES
     Dosage: 50 UNITS, single
     Dates: start: 20121207, end: 20121207
  2. BOTOX� [Suspect]
     Dosage: 50 UNITS, single
     Dates: start: 20120512, end: 20120512

REACTIONS (1)
  - Eyelid oedema [Recovering/Resolving]
